FAERS Safety Report 5343470-7 (Version None)
Quarter: 2007Q2

REPORT INFORMATION
  Report Type: 
  Country: None (occurrence: None)
  Receive Date: 20070531
  Receipt Date: 20070516
  Transmission Date: 20071010
  Serious: Yes (Hospitalization, Other)
  Sender: FDA-Public Use
  Company Number: PAR_01573_2007

PATIENT
  Age: 39 Year
  Sex: Male

DRUGS (3)
  1. CLOZAPINE [Suspect]
     Indication: DELUSION
     Dosage: 150 MG QD
  2. CLOZAPINE [Suspect]
     Indication: HALLUCINATION
     Dosage: 150 MG QD
  3. LORAZEPAM [Concomitant]

REACTIONS (2)
  - NO THERAPEUTIC RESPONSE [None]
  - PSEUDOPHAEOCHROMOCYTOMA [None]
